FAERS Safety Report 6913463-4 (Version None)
Quarter: 2010Q3

REPORT INFORMATION
  Report Type: 
  Country: None (occurrence: None)
  Receive Date: 20100803
  Receipt Date: 20100728
  Transmission Date: 20110219
  Serious: Yes (Hospitalization)
  Sender: FDA-Public Use
  Company Number: 016272

PATIENT
  Sex: Female

DRUGS (9)
  1. KEPPRA [Suspect]
     Indication: STATUS EPILEPTICUS
     Dosage: (INTRAVENOUS), (500 MG TID INTRAVENOUS), (1 G BID INTRAVENOUS)
     Route: 042
     Dates: start: 20100703, end: 20100707
  2. KEPPRA [Suspect]
     Indication: STATUS EPILEPTICUS
     Dosage: (INTRAVENOUS), (500 MG TID INTRAVENOUS), (1 G BID INTRAVENOUS)
     Route: 042
     Dates: start: 20100710, end: 20100714
  3. KEPPRA [Suspect]
     Indication: STATUS EPILEPTICUS
     Dosage: (INTRAVENOUS), (500 MG TID INTRAVENOUS), (1 G BID INTRAVENOUS)
     Route: 042
     Dates: start: 20100715, end: 20100716
  4. GARDENAL /00023201/ (GARDENAL) (NOT SPECIFIED) [Suspect]
     Indication: STATUS EPILEPTICUS
     Dosage: (450 MGINTRAVENOUS), (INTRAVENOUS), (1G / 20 MIN INTRAVENOUS)
     Route: 042
     Dates: start: 20100709, end: 20100701
  5. GARDENAL /00023201/ (GARDENAL) (NOT SPECIFIED) [Suspect]
     Indication: STATUS EPILEPTICUS
     Dosage: (450 MGINTRAVENOUS), (INTRAVENOUS), (1G / 20 MIN INTRAVENOUS)
     Route: 042
     Dates: start: 20100703, end: 20100707
  6. GARDENAL /00023201/ (GARDENAL) (NOT SPECIFIED) [Suspect]
     Indication: STATUS EPILEPTICUS
     Dosage: (450 MGINTRAVENOUS), (INTRAVENOUS), (1G / 20 MIN INTRAVENOUS)
     Route: 042
     Dates: start: 20100715, end: 20100716
  7. RIVOTRIL (RIVOTRIL) [Suspect]
     Indication: STATUS EPILEPTICUS
     Dosage: (2 MG INTRAVENOUS)
     Route: 042
     Dates: start: 20100702, end: 20100716
  8. DEPAKAINE /00228501/ [Concomitant]
  9. ORAL CONTRACEPTIVE NOS [Concomitant]

REACTIONS (13)
  - ABDOMINAL PAIN [None]
  - ALANINE AMINOTRANSFERASE INCREASED [None]
  - ASPARTATE AMINOTRANSFERASE INCREASED [None]
  - BRAIN OEDEMA [None]
  - DRUG INEFFECTIVE [None]
  - GAMMA-GLUTAMYLTRANSFERASE INCREASED [None]
  - HYPERLIPASAEMIA [None]
  - HYPERTENSION [None]
  - LIVER DISORDER [None]
  - OFF LABEL USE [None]
  - PANCREATIC DISORDER [None]
  - STATUS EPILEPTICUS [None]
  - TACHYCARDIA [None]
